FAERS Safety Report 5919185-0 (Version None)
Quarter: 2008Q4

REPORT INFORMATION
  Report Type: 
  Country: None (occurrence: None)
  Receive Date: 20081015
  Receipt Date: 20081006
  Transmission Date: 20090506
  Serious: Yes (Other)
  Sender: FDA-Public Use
  Company Number: NO-MERCK-0810NOR00004

PATIENT
  Age: 52 Year
  Sex: Male

DRUGS (2)
  1. ZETIA [Suspect]
     Route: 065
  2. WARFARIN SODIUM [Concomitant]
     Route: 065

REACTIONS (1)
  - INTERNATIONAL NORMALISED RATIO INCREASED [None]
